FAERS Safety Report 20761710 (Version 1)
Quarter: 2022Q2

REPORT INFORMATION
  Report Type: Spontaneous
  Country: US (occurrence: US)
  Receive Date: 20220428
  Receipt Date: 20220428
  Transmission Date: 20220721
  Serious: Yes (Other)
  Sender: FDA-Public Use
  Company Number: US-BRISTOL-MYERS SQUIBB COMPANY-2022-029445

PATIENT
  Sex: Female

DRUGS (23)
  1. REVLIMID [Suspect]
     Active Substance: LENALIDOMIDE
     Indication: Product used for unknown indication
     Route: 048
     Dates: start: 20140410, end: 20150114
  2. REVLIMID [Suspect]
     Active Substance: LENALIDOMIDE
     Route: 048
     Dates: start: 20200415, end: 20200512
  3. REVLIMID [Suspect]
     Active Substance: LENALIDOMIDE
     Route: 048
     Dates: start: 20140313, end: 20140410
  4. REVLIMID [Suspect]
     Active Substance: LENALIDOMIDE
     Route: 048
     Dates: start: 20130313, end: 20130910
  5. REVLIMID [Suspect]
     Active Substance: LENALIDOMIDE
     Route: 048
     Dates: start: 20130910, end: 20140313
  6. POMALIDOMIDE [Suspect]
     Active Substance: POMALIDOMIDE
     Indication: Product used for unknown indication
     Dosage: DAILY X 3 WEEKS THEN OFF 1 WEEK
     Route: 048
     Dates: start: 20150903, end: 20150922
  7. POMALIDOMIDE [Suspect]
     Active Substance: POMALIDOMIDE
     Route: 048
     Dates: start: 20150114, end: 20150824
  8. VELCADE [Concomitant]
     Active Substance: BORTEZOMIB
     Indication: Product used for unknown indication
     Dosage: WEEKLYX4 EVERY 5 WEEK
     Route: 058
     Dates: start: 20130910, end: 20140313
  9. DECADRON [Concomitant]
     Active Substance: DEXAMETHASONE
     Indication: Product used for unknown indication
     Route: 048
     Dates: start: 20130313, end: 20130910
  10. DECADRON [Concomitant]
     Active Substance: DEXAMETHASONE
     Route: 048
     Dates: start: 20130910, end: 20140313
  11. DECADRON [Concomitant]
     Active Substance: DEXAMETHASONE
     Route: 048
     Dates: start: 20191105, end: 20200609
  12. DECADRON [Concomitant]
     Active Substance: DEXAMETHASONE
     Route: 048
     Dates: start: 20150114, end: 20150824
  13. DECADRON [Concomitant]
     Active Substance: DEXAMETHASONE
     Route: 048
     Dates: start: 20150903, end: 20150922
  14. DECADRON [Concomitant]
     Active Substance: DEXAMETHASONE
     Dosage: WITH EACH DOSE OF CARFILZOMIB
     Route: 042
     Dates: start: 20151027, end: 20190709
  15. DECADRON [Concomitant]
     Active Substance: DEXAMETHASONE
     Route: 048
     Dates: start: 20191105, end: 20200609
  16. DECADRON [Concomitant]
     Active Substance: DEXAMETHASONE
     Dosage: Q 28 DAYS X 6
     Route: 048
     Dates: start: 20200610, end: 20201222
  17. DARZALEX [Concomitant]
     Active Substance: DARATUMUMAB
     Indication: Product used for unknown indication
     Route: 042
     Dates: start: 20200212, end: 20200825
  18. DARZALEX [Concomitant]
     Active Substance: DARATUMUMAB
     Route: 042
     Dates: start: 20190801, end: 20190825
  19. CARFILZOMIB [Concomitant]
     Active Substance: CARFILZOMIB
     Indication: Product used for unknown indication
     Dosage: CYCLE 1 DAY 1ANDAMP;2
     Route: 042
     Dates: start: 20151027, end: 20151029
  20. CARFILZOMIB [Concomitant]
     Active Substance: CARFILZOMIB
     Dosage: CYCLE 1 DAYS 8,9,15,16
     Route: 042
     Dates: start: 20151103, end: 20151123
  21. CARFILZOMIB [Concomitant]
     Active Substance: CARFILZOMIB
     Dosage: DAYS 1,2,8,9,15,16 Q 28 DAYS
     Route: 042
     Dates: start: 20151124, end: 20160509
  22. CARFILZOMIB [Concomitant]
     Active Substance: CARFILZOMIB
     Route: 042
     Dates: start: 20160510, end: 20170213
  23. CARFILZOMIB [Concomitant]
     Active Substance: CARFILZOMIB
     Route: 042
     Dates: start: 20170214, end: 20190709

REACTIONS (2)
  - Drug resistance [Unknown]
  - Toxicity to various agents [Unknown]
